FAERS Safety Report 5064800-X (Version None)
Quarter: 2006Q3

REPORT INFORMATION
  Report Type: 
  Country: None (occurrence: None)
  Receive Date: 20060728
  Receipt Date: 20060718
  Transmission Date: 20061208
  Serious: Yes (Other)
  Sender: FDA-Public Use
  Company Number: PHEH2006US09312

PATIENT
  Age: 55 Year
  Sex: Female
  Weight: 56.235 kg

DRUGS (1)
  1. ZOMETA [Suspect]
     Indication: BREAST CANCER METASTATIC
     Dosage: EVERY FOUR WEEKS
     Dates: start: 20020101, end: 20060718

REACTIONS (1)
  - OSTEONECROSIS [None]
